FAERS Safety Report 19107018 (Version 1)
Quarter: 2021Q2

REPORT INFORMATION
  Report Type: Spontaneous
  Country: US (occurrence: US)
  Receive Date: 20210408
  Receipt Date: 20210408
  Transmission Date: 20210717
  Serious: No
  Sender: FDA-Public Use
  Company Number: US-JNJFOC-20210348353

PATIENT
  Sex: Male
  Weight: 54.48 kg

DRUGS (1)
  1. MENS ROGAINE EXTRA STRENGTH [Suspect]
     Active Substance: MINOXIDIL
     Indication: ALOPECIA
     Dosage: 1 PUMP, TWICE A DAY, THE PATIENT LAST USED THE PRODUCT ON 23/MAR/2021.
     Route: 061
     Dates: start: 20201223

REACTIONS (1)
  - Drug ineffective [Unknown]
